FAERS Safety Report 19835392 (Version 6)
Quarter: 2021Q4

REPORT INFORMATION
  Report Type: Report from Study
  Country: NL (occurrence: NL)
  Receive Date: 20210915
  Receipt Date: 20211223
  Transmission Date: 20220303
  Serious: Yes (Death, Life-Threatening)
  Sender: FDA-Public Use
  Company Number: NL-JNJFOC-20210917656

PATIENT
  Age: 79 Year
  Sex: Male
  Weight: 84.5 kg

DRUGS (21)
  1. NIRAPARIB [Suspect]
     Active Substance: NIRAPARIB
     Indication: Prostate cancer
     Dosage: 200 MG
     Route: 048
     Dates: start: 20210719, end: 20210906
  2. ABIRATERONE ACETATE [Suspect]
     Active Substance: ABIRATERONE ACETATE
     Indication: Prostate cancer
     Dosage: UNK
     Route: 048
  3. PREDNISONE [Suspect]
     Active Substance: PREDNISONE
     Indication: Prostate cancer
     Dosage: 5 MG
     Route: 065
     Dates: start: 20210726
  4. BUMETANIDE [Concomitant]
     Active Substance: BUMETANIDE
     Indication: Dyspnoea
     Dosage: UNK UNK, QD
     Route: 048
     Dates: start: 20200526, end: 20210908
  5. ZOLEDRONIC ACID [Concomitant]
     Active Substance: ZOLEDRONIC ACID
     Indication: Osteoporosis prophylaxis
     Dosage: UNK,  OTHER
     Route: 042
     Dates: start: 20200630, end: 20210908
  6. VITAMIN D3 [Concomitant]
     Active Substance: CHOLECALCIFEROL
     Indication: Osteoporosis prophylaxis
     Dosage: UNK
     Route: 048
     Dates: start: 20201006, end: 20210908
  7. CALCIUM CARBONATE [Concomitant]
     Active Substance: CALCIUM CARBONATE
     Indication: Osteoporosis prophylaxis
     Dosage: UNK UNK, QD
     Route: 048
     Dates: start: 20201006, end: 20210908
  8. METFORMIN [Concomitant]
     Active Substance: METFORMIN HYDROCHLORIDE
     Indication: Diabetes mellitus
     Dosage: UNK
     Route: 048
     Dates: start: 20201006, end: 20210908
  9. DICLOFENAC [Concomitant]
     Active Substance: DICLOFENAC
     Indication: Flank pain
     Dosage: UNK, AS NECESSARY
     Route: 048
     Dates: start: 20201015, end: 20210908
  10. LEUPROLIDE ACETATE [Concomitant]
     Active Substance: LEUPROLIDE ACETATE
     Indication: Prostate cancer
     Dosage: UNK
     Route: 058
     Dates: start: 20201109, end: 20210908
  11. TERBINAFINE [Concomitant]
     Active Substance: TERBINAFINE
     Indication: Onychomycosis
     Dosage: UNK, QD
     Route: 048
     Dates: start: 20201109, end: 20210908
  12. LUTEIN [Concomitant]
     Active Substance: LUTEIN
     Indication: Nutritional supplementation
     Dosage: UNK
     Route: 048
     Dates: start: 20210708, end: 20210908
  13. CHOLECALCIFEROL [Concomitant]
     Active Substance: CHOLECALCIFEROL
     Indication: Osteoporosis prophylaxis
     Dosage: UNK UNK, QD
     Route: 048
     Dates: start: 20210708, end: 20210908
  14. VITAMIN B12 [Concomitant]
     Active Substance: CYANOCOBALAMIN
     Indication: Prophylaxis
     Dosage: UNK
     Route: 048
     Dates: start: 20210708, end: 20210908
  15. CELOSIA ARGENTEA [Concomitant]
     Indication: Nutritional supplementation
     Dosage: UNK UNK, TID
     Route: 048
     Dates: start: 20210708, end: 20210908
  16. CIPROFLOXACIN [Concomitant]
     Active Substance: CIPROFLOXACIN
     Indication: Cystitis
     Dosage: UNK, BID
     Route: 048
     Dates: start: 20210714
  17. METOPROLOL [Concomitant]
     Active Substance: METOPROLOL
     Indication: Hypertension
     Dosage: UNK UNK, BID
     Route: 048
     Dates: start: 20210720, end: 20210908
  18. FISH OIL [Concomitant]
     Active Substance: FISH OIL
     Indication: Nutritional supplementation
     Dosage: UNK UNK, QD
     Route: 048
     Dates: start: 20210708, end: 20210908
  19. PANTOPRAZOLE [Concomitant]
     Active Substance: PANTOPRAZOLE
     Indication: Gastrooesophageal reflux prophylaxis
     Dosage: UNK UNK, QD
     Route: 048
     Dates: start: 20210720, end: 20210908
  20. POLYETHYLENE GLYCOLS [Concomitant]
     Active Substance: POLYETHYLENE GLYCOLS
     Indication: Constipation
     Dosage: UNK
     Route: 048
     Dates: start: 20210720, end: 20210908
  21. ACETAMINOPHEN [Concomitant]
     Active Substance: ACETAMINOPHEN
     Indication: Flank pain
     Dosage: UNK
     Route: 048
     Dates: start: 20210721, end: 20210908

REACTIONS (1)
  - Cardiac fibrillation [Fatal]

NARRATIVE: CASE EVENT DATE: 20210908
